FAERS Safety Report 23354865 (Version 1)
Quarter: 2024Q1

REPORT INFORMATION
  Report Type: Spontaneous
  Country: FR (occurrence: FR)
  Receive Date: 20240101
  Receipt Date: 20240101
  Transmission Date: 20240410
  Serious: Yes (Death, Life-Threatening, Other)
  Sender: FDA-Public Use
  Company Number: None

PATIENT
  Age: 56 Year
  Sex: Female
  Weight: 60.2 kg

DRUGS (3)
  1. CYTARABINE [Suspect]
     Active Substance: CYTARABINE
     Indication: Neoplasm malignant
     Dosage: CYTARABINE 2000 MG/M2 SOIT 3200 MG ? J1 ET J2
     Route: 065
     Dates: start: 20221213, end: 20221214
  2. DOXORUBICIN HYDROCHLORIDE [Suspect]
     Active Substance: DOXORUBICIN HYDROCHLORIDE
     Indication: Breast cancer
     Dosage: UNK, PARENTERAL
     Route: 065
     Dates: start: 2020, end: 202211
  3. METHOTREXATE [Suspect]
     Active Substance: METHOTREXATE
     Indication: Neoplasm malignant
     Dosage: M?THOTREXATE 3000 MG/M2 SOIT 4700 MG ? J1
     Route: 065
     Dates: start: 20221213, end: 20221213

REACTIONS (3)
  - Bone marrow failure [Fatal]
  - Mucormycosis [Fatal]
  - Cardiogenic shock [Fatal]

NARRATIVE: CASE EVENT DATE: 20221222
